FAERS Safety Report 6940112-1 (Version None)
Quarter: 2010Q3

REPORT INFORMATION
  Report Type: 
  Country: None (occurrence: None)
  Receive Date: 20100820
  Receipt Date: 20100810
  Transmission Date: 20110219
  Serious: Yes (Hospitalization)
  Sender: FDA-Public Use
  Company Number: AR-001254

PATIENT
  Sex: Male

DRUGS (1)
  1. NAGLAZYME [Suspect]
     Indication: MUCOPOLYSACCHARIDOSIS VI
     Dosage: (4 VIALS PER WEEK INTRAVENOUS DRIP)
     Route: 041
     Dates: start: 20100301

REACTIONS (2)
  - DRUG DOSE OMISSION [None]
  - RESPIRATORY DISORDER [None]
